FAERS Safety Report 9890060 (Version 1)
Quarter: 2014Q1

REPORT INFORMATION
  Report Type: Spontaneous
  Country: US (occurrence: US)
  Receive Date: 20140212
  Receipt Date: 20140212
  Transmission Date: 20141002
  Serious: No
  Sender: FDA-Public Use
  Company Number: US-BIOGENIDEC-2014BI011047

PATIENT
  Age: 38 Year
  Sex: Female

DRUGS (11)
  1. TECFIDERA [Suspect]
     Indication: MULTIPLE SCLEROSIS
     Route: 048
     Dates: start: 201307
  2. TIZANIDINE [Concomitant]
  3. METFORMIN [Concomitant]
  4. SUMATRIPTAN [Concomitant]
     Indication: MIGRAINE
  5. FIOROCET [Concomitant]
     Indication: MIGRAINE
  6. TRAMADOL [Concomitant]
     Indication: PAIN
  7. NAPROXEN [Concomitant]
  8. VITAMIN D [Concomitant]
  9. VITAMIN B COMPLEX [Concomitant]
  10. VITAMIN B12 [Concomitant]
  11. CLARITIN+D [Concomitant]

REACTIONS (2)
  - Lymphadenopathy [Unknown]
  - Flushing [Not Recovered/Not Resolved]
